FAERS Safety Report 8802994 (Version 2)
Quarter: 2012Q4

REPORT INFORMATION
  Report Type: 
  Country: US (occurrence: US)
  Receive Date: 20120924
  Receipt Date: 20121005
  Transmission Date: 20130627
  Serious: Yes (Other)
  Sender: FDA-Public Use
  Company Number: US-BAYER-2012-099039

PATIENT
  Age: 15 Year
  Sex: Male
  Weight: 100.68 kg

DRUGS (1)
  1. MAGNEVIST [Suspect]
     Indication: NUCLEAR MAGNETIC RESONANCE IMAGING BRAIN
     Dosage: 20 ml, ONCE
     Route: 042
     Dates: start: 20120921, end: 20120921

REACTIONS (6)
  - Hypersensitivity [None]
  - Paraesthesia oral [None]
  - Hypoaesthesia oral [None]
  - Swollen tongue [None]
  - Oedema mouth [None]
  - Urticaria [None]
